FAERS Safety Report 6976834-6 (Version None)
Quarter: 2010Q3

REPORT INFORMATION
  Report Type: 
  Country: None (occurrence: None)
  Receive Date: 20100910
  Receipt Date: 20100908
  Transmission Date: 20110219
  Serious: Yes (Hospitalization)
  Sender: FDA-Public Use
  Company Number: A0880303A

PATIENT
  Age: 61 Year
  Sex: Male

DRUGS (2)
  1. TYKERB [Suspect]
     Indication: BREAST CANCER
     Dosage: 1250MG PER DAY
     Route: 048
     Dates: start: 20100304
  2. RADIATION THERAPY [Suspect]

REACTIONS (2)
  - CANDIDIASIS [None]
  - DECREASED APPETITE [None]
